FAERS Safety Report 8918801 (Version 1)
Quarter: 2012Q4

REPORT INFORMATION
  Report Type: 
  Country: US (occurrence: US)
  Receive Date: 20121120
  Receipt Date: 20121120
  Transmission Date: 20130627
  Serious: No
  Sender: FDA-Public Use
  Company Number: US-ASTRAZENECA-2012SE21226

PATIENT
  Age: 62 Year
  Sex: Female
  Weight: 110.2 kg

DRUGS (8)
  1. NEXIUM [Suspect]
     Indication: GASTROOESOPHAGEAL REFLUX DISEASE
     Route: 048
  2. NEXIUM [Suspect]
     Indication: EROSIVE OESOPHAGITIS
     Route: 048
  3. HYDROCHLOROTHIAZIDE [Concomitant]
     Indication: HYPERTENSION
  4. ATENOLOL [Concomitant]
     Indication: HYPERTENSION
  5. QUINAPRIL [Concomitant]
     Indication: HYPERTENSION
  6. DEXTROL [Concomitant]
     Indication: INCONTINENCE
  7. KOMBIGLYZE [Concomitant]
     Indication: DIABETES MELLITUS
  8. CRESTOR [Concomitant]
     Indication: BLOOD CHOLESTEROL INCREASED

REACTIONS (4)
  - Gastrooesophageal reflux disease [Unknown]
  - Eating disorder [Unknown]
  - Nausea [Unknown]
  - Intentional drug misuse [Unknown]
